FAERS Safety Report 5481600-7 (Version None)
Quarter: 2007Q4

REPORT INFORMATION
  Report Type: 
  Country: None (occurrence: None)
  Receive Date: 20071004
  Receipt Date: 20070919
  Transmission Date: 20080405
  Serious: Yes (Hospitalization)
  Sender: FDA-Public Use
  Company Number: 200708IM000338

PATIENT
  Age: 3 Year
  Sex: Male
  Weight: 15.7 kg

DRUGS (2)
  1. ACTIMMUNE [Suspect]
     Indication: CHRONIC GRANULOMATOUS DISEASE
     Dosage: 32 UG, TIW, SUBCUTANEOUS
     Route: 058
     Dates: start: 20070214, end: 20070801
  2. ACTIMMUNE [Suspect]
     Indication: CHRONIC GRANULOMATOUS DISEASE
     Dosage: 32 UG, TIW, SUBCUTANEOUS
     Route: 058
     Dates: start: 20070913

REACTIONS (2)
  - PYREXIA [None]
  - VOMITING [None]
